FAERS Safety Report 8572353-4 (Version None)
Quarter: 2012Q3

REPORT INFORMATION
  Report Type: 
  Country: None (occurrence: None)
  Receive Date: 20120806
  Receipt Date: 20120801
  Transmission Date: 20120928
  Serious: Yes (Hospitalization, Disabling, Other)
  Sender: FDA-Public Use
  Company Number: US-009507513-2011SP030647

PATIENT

DRUGS (4)
  1. NUVARING [Suspect]
     Dates: start: 20070501, end: 20090801
  2. NUVARING [Suspect]
     Indication: CONTRACEPTION
     Dates: start: 20060501, end: 20090801
  3. PHENDIMETRAZINE HYDROCHLORIDE [Concomitant]
     Indication: MEDICAL DIET
     Dates: start: 20060101
  4. MIRENA [Suspect]
     Indication: PRODUCT USED FOR UNKNOWN INDICATION
     Dates: end: 20090810

REACTIONS (35)
  - TACHYCARDIA [None]
  - ARTHRALGIA [None]
  - CELLULITIS [None]
  - CYST [None]
  - PULMONARY EMBOLISM [None]
  - MUSCULOSKELETAL PAIN [None]
  - JOINT INJURY [None]
  - OEDEMA PERIPHERAL [None]
  - LUNG NEOPLASM [None]
  - PHARYNGITIS [None]
  - WEIGHT INCREASED [None]
  - DIPLOPIA [None]
  - DIARRHOEA [None]
  - BACK INJURY [None]
  - ORAL SURGERY [None]
  - LARYNGITIS [None]
  - HERPES VIRUS INFECTION [None]
  - BLOOD TRIGLYCERIDES INCREASED [None]
  - ARTHRITIS [None]
  - PULMONARY HYPERTENSION [None]
  - PALPITATIONS [None]
  - MIGRAINE [None]
  - CAROTID ARTERY DISSECTION [None]
  - GASTROOESOPHAGEAL REFLUX DISEASE [None]
  - SINUS POLYP [None]
  - CHEST X-RAY ABNORMAL [None]
  - CARPAL TUNNEL SYNDROME [None]
  - CAROTID ARTERY OCCLUSION [None]
  - MUSCULOSKELETAL CHEST PAIN [None]
  - HYPERCOAGULATION [None]
  - CHEST DISCOMFORT [None]
  - ARTHROPOD BITE [None]
  - CHEST PAIN [None]
  - HEAD INJURY [None]
  - TONSILLITIS [None]
